FAERS Safety Report 24762475 (Version 2)
Quarter: 2025Q1

REPORT INFORMATION
  Report Type: Spontaneous
  Country: US (occurrence: US)
  Receive Date: 20241221
  Receipt Date: 20250204
  Transmission Date: 20250409
  Serious: No
  Sender: DR REDDYS
  Company Number: US-DRL-USA-CLI/USA/24/0018521

PATIENT
  Age: 5 Year
  Sex: Male

DRUGS (1)
  1. JAVYGTOR [Suspect]
     Active Substance: SAPROPTERIN DIHYDROCHLORIDE
     Indication: Product used for unknown indication
     Dosage: DAILY DOSE: 500 MG/DAY
     Route: 048

REACTIONS (3)
  - Gastroenteritis viral [Unknown]
  - Feeling abnormal [Unknown]
  - Refusal of treatment by relative [Unknown]

NARRATIVE: CASE EVENT DATE: 20241210
